FAERS Safety Report 16997075 (Version 3)
Quarter: 2019Q4

REPORT INFORMATION
  Report Type: Spontaneous
  Country: JP (occurrence: JP)
  Receive Date: 20191105
  Receipt Date: 20191127
  Transmission Date: 20200122
  Serious: Yes (Life-Threatening, Hospitalization, Other)
  Sender: FDA-Public Use
  Company Number: JP-PFIZER INC-2019473610

PATIENT
  Age: 70 Year
  Sex: Female
  Weight: 59 kg

DRUGS (1)
  1. METHOTREXATE SODIUM. [Suspect]
     Active Substance: METHOTREXATE SODIUM
     Indication: RHEUMATOID ARTHRITIS
     Dosage: (12-16 MG/WEEK) FOR 7 YEARS

REACTIONS (4)
  - Lymphoproliferative disorder [Recovered/Resolved]
  - Respiratory failure [Recovered/Resolved]
  - Diffuse large B-cell lymphoma [Recovered/Resolved]
  - Splenomegaly [Recovered/Resolved]
